FAERS Safety Report 5689856-2 (Version None)
Quarter: 2008Q1

REPORT INFORMATION
  Report Type: 
  Country: None (occurrence: None)
  Receive Date: 20080331
  Receipt Date: 20080331
  Transmission Date: 20080703
  Serious: Yes (Other)
  Sender: FDA-Public Use
  Company Number: None

PATIENT
  Age: 25 Year
  Sex: Female
  Weight: 108.8633 kg

DRUGS (2)
  1. BENTYL [Suspect]
     Indication: CROHN'S DISEASE
     Dosage: 1 20MG TABLET 3X A DAY PO
     Route: 048
     Dates: start: 20060615, end: 20070915
  2. ASACOL [Concomitant]

REACTIONS (7)
  - ANOREXIA [None]
  - CHEST PAIN [None]
  - DYSPNOEA [None]
  - MOOD SWINGS [None]
  - NIGHTMARE [None]
  - PARANOIA [None]
  - WITHDRAWAL SYNDROME [None]
